FAERS Safety Report 24371969 (Version 1)
Quarter: 2024Q3

REPORT INFORMATION
  Report Type: Spontaneous
  Country: US (occurrence: US)
  Receive Date: 20240927
  Receipt Date: 20240927
  Transmission Date: 20241017
  Serious: Yes (Other)
  Sender: DR REDDYS
  Company Number: US-DRL-USA-LIT/USA/24/0014159

PATIENT
  Age: 41 Year
  Sex: Female

DRUGS (4)
  1. PRIMIDONE [Suspect]
     Active Substance: PRIMIDONE
     Indication: Hereditary ataxia
     Dosage: 250 MG
  2. PRIMIDONE [Suspect]
     Active Substance: PRIMIDONE
     Indication: Tremor
  3. LEVETIRACETAM [Suspect]
     Active Substance: LEVETIRACETAM
     Indication: Hereditary ataxia
     Dosage: 3000 MG
  4. LEVETIRACETAM [Suspect]
     Active Substance: LEVETIRACETAM
     Indication: Tremor

REACTIONS (1)
  - Drug ineffective for unapproved indication [Unknown]
